FAERS Safety Report 16955403 (Version 10)
Quarter: 2020Q3

REPORT INFORMATION
  Report Type: Report from Study
  Country: US (occurrence: US)
  Receive Date: 20191024
  Receipt Date: 20200805
  Transmission Date: 20201102
  Serious: Yes (Other)
  Sender: FDA-Public Use
  Company Number: US-GLAXOSMITHKLINE-2018-TSO1300-US

PATIENT
  Age: 82 Year
  Sex: Female

DRUGS (8)
  1. NIRAPARIB [Suspect]
     Active Substance: NIRAPARIB
     Dosage: 200 MG, QD
  2. NIRAPARIB [Suspect]
     Active Substance: NIRAPARIB
     Dosage: 200 MG, PM WITH FOOD
  3. NIRAPARIB [Suspect]
     Active Substance: NIRAPARIB
     Dosage: 200 MG, QD
     Dates: start: 201912
  4. NIRAPARIB [Suspect]
     Active Substance: NIRAPARIB
     Dosage: 200 MG, QD
     Dates: start: 20190930
  5. NIRAPARIB [Suspect]
     Active Substance: NIRAPARIB
     Dosage: 200 MG, PM WITH FOOD
  6. NIRAPARIB [Suspect]
     Active Substance: NIRAPARIB
     Dosage: 200 MG, QD
  7. NIRAPARIB [Suspect]
     Active Substance: NIRAPARIB
     Indication: OVARIAN CANCER
     Dosage: 200 MG, QD, 8PM WITH/WITH OUT FOOD
     Route: 048
     Dates: start: 20180921
  8. NIRAPARIB [Suspect]
     Active Substance: NIRAPARIB
     Dosage: 300 MG, QD

REACTIONS (12)
  - Constipation [Recovered/Resolved]
  - Weight decreased [Recovered/Resolved]
  - Asthenia [Unknown]
  - Muscle spasms [Unknown]
  - Off label use [Unknown]
  - Neuropathy peripheral [Not Recovered/Not Resolved]
  - Drug ineffective [Unknown]
  - Oral viral infection [Unknown]
  - Oral pain [Recovered/Resolved]
  - Cough [Recovered/Resolved]
  - Fatigue [Not Recovered/Not Resolved]
  - Viral infection [Recovered/Resolved]

NARRATIVE: CASE EVENT DATE: 201905
